FAERS Safety Report 6273619-3 (Version None)
Quarter: 2009Q3

REPORT INFORMATION
  Report Type: 
  Country: None (occurrence: None)
  Receive Date: 20090715
  Receipt Date: 20090706
  Transmission Date: 20100115
  Serious: Yes (Death)
  Sender: FDA-Public Use
  Company Number: GXKR2009DK07838

PATIENT
  Sex: Male

DRUGS (1)
  1. FLUOXETINE [Suspect]
     Dosage: VIA LACTATION

REACTIONS (5)
  - CARDIOVASCULAR DISORDER [None]
  - CEREBRAL DISORDER [None]
  - DRUG EXPOSURE VIA BREAST MILK [None]
  - NEONATAL ANOXIA [None]
  - PREMATURE BABY [None]
